FAERS Safety Report 7111285-5 (Version None)
Quarter: 2010Q4

REPORT INFORMATION
  Report Type: 
  Country: None (occurrence: None)
  Receive Date: 20101118
  Receipt Date: 20101109
  Transmission Date: 20110411
  Serious: Yes (Other)
  Sender: FDA-Public Use
  Company Number: FR-JNJFOC-20100904918

PATIENT
  Age: 26 Year
  Sex: Female
  Weight: 68 kg

DRUGS (4)
  1. REMICADE [Suspect]
     Indication: HIDRADENITIS
     Dosage: 4 DOSES
     Route: 042
  2. REMICADE [Suspect]
     Dosage: 4 DOSES
     Route: 042
  3. REMICADE [Suspect]
     Dosage: 4 DOSES
     Route: 042
  4. REMICADE [Suspect]
     Dosage: 4 DOSES
     Route: 042

REACTIONS (9)
  - ANTINUCLEAR ANTIBODY POSITIVE [None]
  - ARTHRALGIA [None]
  - ASTHENIA [None]
  - HYPERPYREXIA [None]
  - LOBAR PNEUMONIA [None]
  - MYALGIA [None]
  - NAUSEA [None]
  - TYPE IV HYPERSENSITIVITY REACTION [None]
  - VOMITING [None]
